FAERS Safety Report 24277851 (Version 4)
Quarter: 2024Q4

REPORT INFORMATION
  Report Type: Spontaneous
  Country: US (occurrence: US)
  Receive Date: 20240903
  Receipt Date: 20241005
  Transmission Date: 20250115
  Serious: Yes (Other)
  Sender: BAYER
  Company Number: US-BAYER-2024A125356

PATIENT
  Age: 52 Year
  Sex: Female

DRUGS (2)
  1. MIRENA [Suspect]
     Active Substance: LEVONORGESTREL
     Indication: Contraception
     Dosage: 20?G/DAY
     Route: 015
     Dates: start: 20170706, end: 20240830
  2. MIRENA [Suspect]
     Active Substance: LEVONORGESTREL
     Indication: Heavy menstrual bleeding

REACTIONS (6)
  - Device breakage [None]
  - Complication of device removal [None]
  - Genital haemorrhage [None]
  - Abdominal discomfort [None]
  - Complication of device removal [None]
  - Complication of device removal [None]

NARRATIVE: CASE EVENT DATE: 20240830
